FAERS Safety Report 9614217 (Version 1)
Quarter: 2013Q4

REPORT INFORMATION
  Report Type: Spontaneous
  Country: FR (occurrence: FR)
  Receive Date: 20131011
  Receipt Date: 20131011
  Transmission Date: 20140711
  Serious: Yes (Death, Other)
  Sender: FDA-Public Use
  Company Number: FR-ROCHE-1287000

PATIENT
  Sex: Male

DRUGS (2)
  1. ZELBORAF [Suspect]
     Indication: PRODUCT USED FOR UNKNOWN INDICATION
     Route: 048
     Dates: start: 201305, end: 201307
  2. ZELBORAF [Suspect]
     Route: 048
     Dates: start: 201307

REACTIONS (2)
  - Death [Fatal]
  - Squamous cell carcinoma [Not Recovered/Not Resolved]
